FAERS Safety Report 6154095-8 (Version None)
Quarter: 2009Q2

REPORT INFORMATION
  Report Type: 
  Country: None (occurrence: None)
  Receive Date: 20090414
  Receipt Date: 20090403
  Transmission Date: 20091009
  Serious: Yes (Other)
  Sender: FDA-Public Use
  Company Number: PHHY2009AT12662

PATIENT

DRUGS (4)
  1. DICLOFENAC SODIUM (NVO) [Suspect]
     Route: 047
  2. PHENYLEPHRINE [Concomitant]
     Route: 047
  3. TROPICAMIDE [Concomitant]
     Route: 047
  4. CYCLOPENTOLATE HCL [Concomitant]
     Route: 047

REACTIONS (2)
  - EYE OPERATION [None]
  - VITREOUS PROLAPSE [None]
